FAERS Safety Report 8898345 (Version 1)
Quarter: 2012Q4

REPORT INFORMATION
  Report Type: 
  Country: US (occurrence: US)
  Receive Date: 20121108
  Receipt Date: 20121108
  Transmission Date: 20130627
  Serious: No
  Sender: FDA-Public Use
  Company Number: US-AMGEN-USASP2012030138

PATIENT
  Age: 48 Year
  Sex: Female
  Weight: 68 kg

DRUGS (4)
  1. ENBREL [Suspect]
     Indication: PRODUCT USED FOR UNKNOWN INDICATION
     Dosage: 50 mg, qwk
  2. METHOTREXATE [Concomitant]
     Indication: RHEUMATOID ARTHRITIS
     Dosage: 2.5 mg, UNK
     Route: 048
  3. ALEVE [Concomitant]
     Indication: PAIN
     Dosage: 220 mg, UNK
     Route: 048
  4. ADVAIR [Concomitant]
     Indication: ASTHMA

REACTIONS (1)
  - Back pain [Recovering/Resolving]
